FAERS Safety Report 4376805-2 (Version None)
Quarter: 2004Q2

REPORT INFORMATION
  Report Type: 
  Country: None (occurrence: None)
  Receive Date: 20040608
  Receipt Date: 20040116
  Transmission Date: 20050107
  Serious: Yes (Hospitalization)
  Sender: FDA-Public Use
  Company Number: MK200401-0134-1

PATIENT
  Age: 78 Year
  Sex: Male

DRUGS (1)
  1. CONRAY 30 [Suspect]
     Indication: SPINAL MYELOGRAM
     Dosage: 15CC, ONCE
     Dates: start: 20040116, end: 20040116

REACTIONS (3)
  - MUSCLE SPASMS [None]
  - PAIN IN EXTREMITY [None]
  - RESPIRATORY DISTRESS [None]
